FAERS Safety Report 8188071-0 (Version None)
Quarter: 2012Q1

REPORT INFORMATION
  Report Type: 
  Country: None (occurrence: None)
  Receive Date: 20120306
  Receipt Date: 20120301
  Transmission Date: 20120608
  Serious: No
  Sender: FDA-Public Use
  Company Number: US-PFIZER INC-2012055473

PATIENT
  Sex: Male
  Weight: 40.363 kg

DRUGS (4)
  1. RITALIN [Concomitant]
     Dosage: 5 MG, UNK
  2. METHYLPHENIDATE [Concomitant]
     Dosage: 10 MG, 9 HR
  3. GENOTROPIN [Suspect]
     Dosage: 2.4 MG, 1X/DAY, 7 DAYS PER WEEK
     Route: 058
  4. GUANFACINE [Concomitant]
     Dosage: 1 MG, UNK

REACTIONS (1)
  - INJECTION SITE PAIN [None]
